FAERS Safety Report 8240615-6 (Version None)
Quarter: 2012Q1

REPORT INFORMATION
  Report Type: 
  Country: None (occurrence: None)
  Receive Date: 20120328
  Receipt Date: 20120319
  Transmission Date: 20120608
  Serious: Yes (Life-Threatening, Hospitalization, Other)
  Sender: FDA-Public Use
  Company Number: GB-MEDIMMUNE-MEDI-0015038

PATIENT
  Sex: Male
  Weight: 5.62 kg

DRUGS (1)
  1. SYNAGIS [Suspect]
     Dates: start: 20111214, end: 20111214

REACTIONS (5)
  - RESPIRATORY SYNCYTIAL VIRUS BRONCHIOLITIS [None]
  - ADENOVIRUS INFECTION [None]
  - RESPIRATORY ARREST [None]
  - HAEMOPHILUS INFECTION [None]
  - PNEUMONIA HAEMOPHILUS [None]
